FAERS Safety Report 4618731-7 (Version None)
Quarter: 2005Q1

REPORT INFORMATION
  Report Type: 
  Country: None (occurrence: None)
  Receive Date: 20050323
  Receipt Date: 20050307
  Transmission Date: 20050727
  Serious: Yes (Hospitalization)
  Sender: FDA-Public Use
  Company Number: USA050392477

PATIENT
  Age: 58 Year
  Sex: Female
  Weight: 86 kg

DRUGS (4)
  1. HUMULIN L [Suspect]
     Indication: DIABETES MELLITUS
     Dosage: 30 U/1 DAY
     Dates: start: 19890101, end: 20050201
  2. HUMULIN R [Suspect]
     Indication: DIABETES MELLITUS
     Dates: start: 19890101, end: 20050201
  3. HUMALOG [Suspect]
     Indication: DIABETES MELLITUS
     Dosage: 10 U AS NEEDED
     Dates: start: 20050201
  4. HUMALOG [Suspect]
     Indication: DIABETES MELLITUS
     Dosage: 70 U DAY
     Dates: start: 20050201

REACTIONS (4)
  - BLOOD GLUCOSE INCREASED [None]
  - BURNING SENSATION [None]
  - CEREBROVASCULAR ACCIDENT [None]
  - PHARMACEUTICAL PRODUCT COMPLAINT [None]
